FAERS Safety Report 16091789 (Version 1)
Quarter: 2019Q1

REPORT INFORMATION
  Report Type: Spontaneous
  Country: BE (occurrence: BE)
  Receive Date: 20190319
  Receipt Date: 20190319
  Transmission Date: 20190418
  Serious: Yes (Other)
  Sender: FDA-Public Use
  Company Number: BE-PFIZER INC-2019114739

PATIENT
  Sex: Male
  Weight: 85.5 kg

DRUGS (12)
  1. CYMEVENE [GANCICLOVIR SODIUM] [Suspect]
     Active Substance: GANCICLOVIR SODIUM
     Dosage: UNK
     Dates: start: 201709
  2. CYCLOPHOSPHAMIDE. [Suspect]
     Active Substance: CYCLOPHOSPHAMIDE
     Dosage: 1 CYCLE
     Dates: start: 20170211
  3. AMBISONE [Concomitant]
     Active Substance: AMPHOTERICIN B
     Indication: ASPERGILLUS INFECTION
     Dosage: UNK
     Dates: start: 201802
  4. CYMEVENE [GANCICLOVIR SODIUM] [Suspect]
     Active Substance: GANCICLOVIR SODIUM
     Dosage: UNK
     Dates: start: 20171220, end: 20180119
  5. ALEMTUZUMAB [Suspect]
     Active Substance: ALEMTUZUMAB
     Dosage: UNK
  6. VINCRISTINE [Suspect]
     Active Substance: VINCRISTINE
     Dosage: 1 CYCLE
     Dates: start: 20170211
  7. CYMEVENE [GANCICLOVIR SODIUM] [Suspect]
     Active Substance: GANCICLOVIR SODIUM
     Indication: CYTOMEGALOVIRUS INFECTION
     Dosage: 400 MG, (3 WEEKS)
     Dates: start: 201703
  8. CYMEVENE [GANCICLOVIR SODIUM] [Suspect]
     Active Substance: GANCICLOVIR SODIUM
     Dosage: UNK
     Dates: start: 20171110, end: 20171201
  9. DOXORUBICIN HCL [Suspect]
     Active Substance: DOXORUBICIN HYDROCHLORIDE
     Dosage: 1 CYCLE
     Dates: start: 20170211
  10. VALCYTE [Suspect]
     Active Substance: VALGANCICLOVIR HYDROCHLORIDE
     Indication: CYTOMEGALOVIRUS INFECTION
     Dosage: UNK
     Route: 065
     Dates: start: 20170412, end: 20170820
  11. PREDNISONE. [Suspect]
     Active Substance: PREDNISONE
     Dosage: 1 CYCLE
     Dates: start: 20170211
  12. VFEND [Concomitant]
     Active Substance: VORICONAZOLE
     Indication: ASPERGILLUS INFECTION
     Dosage: UNK

REACTIONS (6)
  - Arthritis [Recovered/Resolved]
  - Lung disorder [Unknown]
  - Aspergillus infection [Unknown]
  - Cytomegalovirus infection [Unknown]
  - Tenosynovitis stenosans [Unknown]
  - Pneumonia cytomegaloviral [Unknown]

NARRATIVE: CASE EVENT DATE: 201709
